FAERS Safety Report 6173709-X (Version None)
Quarter: 2009Q2

REPORT INFORMATION
  Report Type: 
  Country: None (occurrence: None)
  Receive Date: 20090430
  Receipt Date: 20090422
  Transmission Date: 20091009
  Serious: Yes (Other)
  Sender: FDA-Public Use
  Company Number: PHHY2009MX15315

PATIENT
  Sex: Female

DRUGS (1)
  1. ZELMAC [Suspect]
     Dosage: 6 MG
     Dates: start: 20090422

REACTIONS (5)
  - ASTHENIA [None]
  - DIZZINESS [None]
  - EXTRASYSTOLES [None]
  - HEADACHE [None]
  - VISION BLURRED [None]
